FAERS Safety Report 4889399-X (Version None)
Quarter: 2006Q1

REPORT INFORMATION
  Report Type: 
  Country: None (occurrence: None)
  Receive Date: 20060124
  Receipt Date: 20050913
  Transmission Date: 20060701
  Serious: Yes (Hospitalization)
  Sender: FDA-Public Use
  Company Number: PHNU2005DE03176

PATIENT
  Age: 65 Year
  Sex: Female

DRUGS (6)
  1. ENALAPRIL [Concomitant]
  2. DOXAZOSIN [Concomitant]
  3. EMSELEX EXTENDED RELEASE [Suspect]
     Indication: HYPERTONIC BLADDER
     Dosage: 7.5 MG DAILY
     Route: 048
     Dates: start: 20050419, end: 20050425
  4. EMSELEX EXTENDED RELEASE [Suspect]
     Dosage: 15MG/DAY
     Route: 048
     Dates: start: 20050426, end: 20050610
  5. IBUPROFEN [Suspect]
     Indication: BACK PAIN
  6. ANAESTHETICS [Suspect]
     Indication: EYE OPERATION

REACTIONS (4)
  - HEPATITIS TOXIC [None]
  - JAUNDICE [None]
  - LIVER DISORDER [None]
  - TRANSAMINASES INCREASED [None]
